FAERS Safety Report 13354372 (Version 5)
Quarter: 2017Q3

REPORT INFORMATION
  Report Type: Spontaneous
  Country: DE (occurrence: DE)
  Receive Date: 20170321
  Receipt Date: 20170707
  Transmission Date: 20171127
  Serious: Yes (Other)
  Sender: FDA-Public Use
  Company Number: PHHY2017DE041584

PATIENT
  Sex: Female

DRUGS (3)
  1. VOTUBIA [Suspect]
     Active Substance: EVEROLIMUS
     Dosage: 5 MG, UNK
     Route: 065
  2. VOTUBIA [Suspect]
     Active Substance: EVEROLIMUS
     Dosage: 6 MG, UNK
     Route: 065
  3. VOTUBIA [Suspect]
     Active Substance: EVEROLIMUS
     Indication: ASTROCYTOMA, LOW GRADE
     Route: 065

REACTIONS (2)
  - Liver function test increased [Unknown]
  - Blood lactate dehydrogenase increased [Recovering/Resolving]
